FAERS Safety Report 6855040-X (Version None)
Quarter: 2010Q3

REPORT INFORMATION
  Report Type: 
  Country: None (occurrence: None)
  Receive Date: 20100717
  Receipt Date: 20080705
  Transmission Date: 20110219
  Serious: Yes (Other)
  Sender: FDA-Public Use
  Company Number: US-PFIZER INC-2007108957

PATIENT
  Sex: Male
  Weight: 70.454 kg

DRUGS (3)
  1. CHANTIX [Suspect]
     Indication: SMOKING CESSATION THERAPY
     Dates: start: 20071201
  2. CYMBALTA [Concomitant]
  3. TRAMADOL [Concomitant]

REACTIONS (6)
  - DEPRESSED MOOD [None]
  - DRUG DOSE OMISSION [None]
  - FEELING ABNORMAL [None]
  - HANGOVER [None]
  - SOMNOLENCE [None]
  - SUICIDAL IDEATION [None]
